FAERS Safety Report 9596733 (Version 1)
Quarter: 2013Q4

REPORT INFORMATION
  Report Type: Spontaneous
  Country: SK (occurrence: SK)
  Receive Date: 20131004
  Receipt Date: 20131004
  Transmission Date: 20140711
  Serious: Yes (Hospitalization, Other)
  Sender: FDA-Public Use
  Company Number: SK-GLAXOSMITHKLINE-B0927237A

PATIENT
  Age: 12 Year
  Sex: Male

DRUGS (6)
  1. LAMOTRIGINE [Suspect]
     Indication: EPILEPSY
     Route: 065
  2. PHENOBARBITAL [Concomitant]
     Indication: CONVULSION
  3. CARBAMAZEPIN [Concomitant]
     Indication: GRAND MAL CONVULSION
  4. VALPROIC ACID [Concomitant]
     Indication: GRAND MAL CONVULSION
  5. LEVETIRACETAM [Concomitant]
  6. PIRACETAM [Concomitant]

REACTIONS (8)
  - Status epilepticus [Recovering/Resolving]
  - Condition aggravated [Recovering/Resolving]
  - Electroencephalogram abnormal [Recovering/Resolving]
  - Cerebral cyst [Unknown]
  - Educational problem [Unknown]
  - Abnormal behaviour [Unknown]
  - Impulsive behaviour [Unknown]
  - Aggression [Unknown]
